FAERS Safety Report 7526919 (Version 2)
Quarter: 2013Q4

REPORT INFORMATION
  Report Type: Spontaneous
  Country: US (occurrence: US)
  Receive Date: 20100804
  Receipt Date: 20131226
  Transmission Date: 20140711
  Serious: No
  Sender: FDA-Public Use
  Company Number: US-JNJFOC-20100708333

PATIENT
  Age: 66 Year
  Sex: Female
  Weight: 53.07 kg

DRUGS (14)
  1. SANDOZ FENTANYL TRANSDERMAL SYSTEM [Suspect]
     Indication: SCOLIOSIS
     Route: 062
     Dates: start: 20100702
  2. SANDOZ FENTANYL TRANSDERMAL SYSTEM [Suspect]
     Indication: SCOLIOSIS
     Route: 062
     Dates: start: 2010, end: 20100702
  3. SANDOZ FENTANYL TRANSDERMAL SYSTEM [Suspect]
     Indication: SPINAL COLUMN STENOSIS
     Route: 062
     Dates: start: 2010, end: 20100702
  4. SANDOZ FENTANYL TRANSDERMAL SYSTEM [Suspect]
     Indication: SPINAL COLUMN STENOSIS
     Route: 062
     Dates: start: 20100702
  5. SANDOZ FENTANYL TRANSDERMAL SYSTEM [Suspect]
     Indication: OSTEITIS DEFORMANS
     Route: 062
     Dates: start: 20100702
  6. SANDOZ FENTANYL TRANSDERMAL SYSTEM [Suspect]
     Indication: OSTEITIS DEFORMANS
     Route: 062
     Dates: start: 2010, end: 20100702
  7. ESTRACE [Concomitant]
     Indication: VULVOVAGINAL DRYNESS
     Route: 067
  8. XANAX [Concomitant]
     Indication: SLEEP DISORDER
     Dosage: AT BED TIME
     Route: 048
  9. DIAZEPAM [Concomitant]
     Indication: MUSCLE SPASMS
     Route: 048
  10. NEXIUM [Concomitant]
     Indication: ULCER
     Route: 048
  11. PERCOCET [Concomitant]
     Indication: PAIN
     Dosage: 3-5 A DAY AS NEEDED
     Route: 048
  12. SALMON [Concomitant]
     Indication: OSTEITIS DEFORMANS
     Route: 058
  13. FORTICAL [Concomitant]
     Indication: OSTEITIS DEFORMANS
     Route: 045
  14. VITAMIN D [Concomitant]
     Indication: OSTEITIS DEFORMANS
     Route: 048

REACTIONS (5)
  - Drug ineffective [Unknown]
  - Product packaging issue [Unknown]
  - Headache [Not Recovered/Not Resolved]
  - Wrong technique in drug usage process [Not Recovered/Not Resolved]
  - Drug ineffective [Not Recovered/Not Resolved]
